FAERS Safety Report 19761036 (Version 1)
Quarter: 2021Q3

REPORT INFORMATION
  Report Type: Spontaneous
  Country: US (occurrence: US)
  Receive Date: 20210827
  Receipt Date: 20210827
  Transmission Date: 20211014
  Serious: Yes (Other)
  Sender: FDA-Public Use
  Company Number: None

PATIENT
  Age: 91 Year
  Sex: Male

DRUGS (1)
  1. XTANDI [Suspect]
     Active Substance: ENZALUTAMIDE
     Indication: PROSTATE CANCER
     Route: 048
     Dates: start: 20210724, end: 20210821

REACTIONS (5)
  - Decreased appetite [None]
  - Hypersomnia [None]
  - Asthenia [None]
  - Memory impairment [None]
  - Illness [None]

NARRATIVE: CASE EVENT DATE: 20210820
